FAERS Safety Report 9652824 (Version 1)
Quarter: 2013Q4

REPORT INFORMATION
  Report Type: Spontaneous
  Country: GB (occurrence: GB)
  Receive Date: 20131029
  Receipt Date: 20131029
  Transmission Date: 20140711
  Serious: Yes (Other)
  Sender: FDA-Public Use
  Company Number: GB-JNJFOC-20131014700

PATIENT
  Sex: 0

DRUGS (1)
  1. HALOPERIDOL [Suspect]
     Indication: PSYCHOTIC DISORDER
     Route: 065

REACTIONS (2)
  - Electrocardiogram QRS complex shortened [Unknown]
  - Overdose [Unknown]
